FAERS Safety Report 12256164 (Version 2)
Quarter: 2016Q2

REPORT INFORMATION
  Report Type: Spontaneous
  Country: US (occurrence: US)
  Receive Date: 20160412
  Receipt Date: 20160503
  Transmission Date: 20160815
  Serious: No
  Sender: FDA-Public Use
  Company Number: US-PFIZER INC-2016175436

PATIENT
  Age: 61 Year
  Sex: Male

DRUGS (3)
  1. LYRICA [Suspect]
     Active Substance: PREGABALIN
     Indication: HYPOAESTHESIA
     Dosage: 200 MG, DAILY (LYRICA 100MG*2DAILY)
  2. LYRICA [Suspect]
     Active Substance: PREGABALIN
     Indication: PARAESTHESIA
     Dosage: 100 MG, 2X/DAY
     Dates: start: 201602
  3. ACITRETIN. [Concomitant]
     Active Substance: ACITRETIN
     Dosage: 35 MG, 1X/DAY (1 IN MORNING)

REACTIONS (4)
  - Back pain [Unknown]
  - Pain in extremity [Unknown]
  - Skin disorder [Not Recovered/Not Resolved]
  - Erythema [Not Recovered/Not Resolved]

NARRATIVE: CASE EVENT DATE: 201602
